FAERS Safety Report 24658724 (Version 1)
Quarter: 2024Q4

REPORT INFORMATION
  Report Type: Spontaneous
  Country: GB (occurrence: GB)
  Receive Date: 20241125
  Receipt Date: 20241125
  Transmission Date: 20250115
  Serious: Yes (Other)
  Sender: GILEAD
  Company Number: GB-GILEAD-2024-0694415

PATIENT
  Age: 53 Year
  Sex: Female

DRUGS (1)
  1. SACITUZUMAB GOVITECAN-HZIY [Suspect]
     Active Substance: SACITUZUMAB GOVITECAN-HZIY
     Indication: Triple negative breast cancer
     Dosage: FULL DOSE MANAGED FOR ALL 11 CYCLES
     Route: 065
     Dates: start: 20220811, end: 20230316

REACTIONS (5)
  - Disease progression [Unknown]
  - Haematoma [Recovered/Resolved]
  - Infection [Recovered/Resolved]
  - Diarrhoea [Unknown]
  - Fatigue [Unknown]
